FAERS Safety Report 18131889 (Version 1)
Quarter: 2020Q3

REPORT INFORMATION
  Report Type: Spontaneous
  Country: US (occurrence: US)
  Receive Date: 20200810
  Receipt Date: 20200810
  Transmission Date: 20201103
  Serious: No
  Sender: FDA-Public Use
  Company Number: US-ELI_LILLY_AND_COMPANY-US202007008095

PATIENT
  Age: 58 Year
  Sex: Female

DRUGS (3)
  1. EMGALITY [Suspect]
     Active Substance: GALCANEZUMAB-GNLM
     Indication: MIGRAINE
     Dosage: 120 MG, LOADING DOSE
     Route: 065
     Dates: start: 20200716
  2. ADVIL MIGRAINE [Concomitant]
     Active Substance: IBUPROFEN
     Indication: MIGRAINE
     Dosage: UNK, UNKNOWN
     Route: 065
  3. BUTALB/ACET/CAFFEINE [Concomitant]
     Indication: MIGRAINE
     Dosage: UNK, UNKNOWN
     Route: 065

REACTIONS (1)
  - Underdose [Unknown]

NARRATIVE: CASE EVENT DATE: 20200716
